FAERS Safety Report 13239569 (Version 4)
Quarter: 2017Q1

REPORT INFORMATION
  Report Type: Spontaneous
  Country: ES (occurrence: ES)
  Receive Date: 20170216
  Receipt Date: 20170309
  Transmission Date: 20170428
  Serious: Yes (Life-Threatening, Hospitalization, Disabling)
  Sender: FDA-Public Use
  Company Number: ES-JNJFOC-20170212505

PATIENT
  Age: 59 Year
  Sex: Male
  Weight: 91 kg

DRUGS (19)
  1. ALISKIREN [Concomitant]
     Active Substance: ALISKIREN
     Route: 065
     Dates: start: 20120424, end: 20131001
  2. REMICADE [Suspect]
     Active Substance: INFLIXIMAB
     Indication: ANKYLOSING SPONDYLITIS
     Route: 042
     Dates: start: 20100127
  3. LOSARTAN AND HYDROCHLOROTHIAZIDE [Concomitant]
     Active Substance: HYDROCHLOROTHIAZIDE\LOSARTAN POTASSIUM
     Indication: HYPERTENSION
     Route: 065
     Dates: start: 20110628, end: 20150324
  4. AMLODIPINE [Concomitant]
     Active Substance: AMLODIPINE BESYLATE
     Route: 065
     Dates: start: 20131001, end: 20150324
  5. ACOXXEL [Suspect]
     Active Substance: ETORICOXIB
     Indication: PRODUCT USED FOR UNKNOWN INDICATION
     Route: 048
     Dates: start: 20110922
  6. ALLOPURINOL. [Concomitant]
     Active Substance: ALLOPURINOL
     Indication: HYPERURICAEMIA
     Route: 065
     Dates: start: 20020709
  7. NIFEDIPINE. [Concomitant]
     Active Substance: NIFEDIPINE
     Route: 065
     Dates: start: 20150324
  8. ACOXXEL [Suspect]
     Active Substance: ETORICOXIB
     Indication: PRODUCT USED FOR UNKNOWN INDICATION
     Route: 048
     Dates: start: 19981015, end: 20120315
  9. REMICADE [Suspect]
     Active Substance: INFLIXIMAB
     Indication: SPONDYLITIS
     Route: 042
     Dates: start: 20100127
  10. LISINOPRIL. [Concomitant]
     Active Substance: LISINOPRIL
     Indication: HYPERTENSION
     Route: 065
     Dates: start: 19980306, end: 20110628
  11. SULINDAC. [Suspect]
     Active Substance: SULINDAC
     Indication: SPONDYLITIS
     Route: 048
     Dates: start: 19981015, end: 20091031
  12. PREDNISONE. [Concomitant]
     Active Substance: PREDNISONE
     Indication: SPONDYLITIS
     Route: 048
     Dates: start: 19980506, end: 20050615
  13. HYDROCHLOROTHIAZIDE. [Concomitant]
     Active Substance: HYDROCHLOROTHIAZIDE
     Indication: HYPERTENSION
     Route: 065
     Dates: start: 19980306, end: 20110628
  14. ATENOLOL. [Concomitant]
     Active Substance: ATENOLOL
     Indication: HYPERTENSION
     Route: 065
     Dates: start: 20020121
  15. SIMVASTATIN. [Concomitant]
     Active Substance: SIMVASTATIN
     Indication: DYSLIPIDAEMIA
     Route: 065
     Dates: start: 20110628
  16. GEMFIBROZIL. [Concomitant]
     Active Substance: GEMFIBROZIL
     Indication: DYSLIPIDAEMIA
     Route: 065
     Dates: start: 20020709, end: 20110628
  17. METHOTREXATE. [Suspect]
     Active Substance: METHOTREXATE
     Indication: SPONDYLITIS
     Dosage: 7.5 MG TO 69 MG PER WEEK
     Route: 048
     Dates: start: 19980804, end: 20050215
  18. SULPHASALAZINE [Concomitant]
     Active Substance: SULFASALAZINE
     Indication: SPONDYLITIS
     Dosage: 1 TO 3 GRAM/DAY
     Route: 048
     Dates: start: 19990615
  19. AMILORIDE [Concomitant]
     Active Substance: AMILORIDE
     Indication: HYPERTENSION
     Route: 065
     Dates: start: 20040615, end: 20041116

REACTIONS (4)
  - Papillary renal cell carcinoma [Unknown]
  - Urinary tract infection [Unknown]
  - Spondylitis [Recovered/Resolved]
  - Chronic kidney disease [Unknown]

NARRATIVE: CASE EVENT DATE: 2014
